FAERS Safety Report 9251603 (Version 2)
Quarter: 2014Q1

REPORT INFORMATION
  Report Type: Spontaneous
  Country: US (occurrence: None)
  Receive Date: 20130305
  Receipt Date: 20140306
  Transmission Date: 20141002
  Serious: Yes (Other)
  Sender: FDA-Public Use
  Company Number: 163-21880-12090427

PATIENT
  Age: 83 Year
  Sex: Male

DRUGS (1)
  1. REVLIMID [Suspect]
     Indication: PLASMA CELL MYELOMA
     Dosage: 18.75 MG 21 IN 28 D PO
     Dates: start: 20120813

REACTIONS (6)
  - Anal haemorrhage [None]
  - Skin discolouration [None]
  - Constipation [None]
  - Abnormal faeces [None]
  - Pain [None]
  - Cataract [None]
